FAERS Safety Report 4883230-4 (Version None)
Quarter: 2006Q1

REPORT INFORMATION
  Report Type: 
  Country: None (occurrence: None)
  Receive Date: 20060117
  Receipt Date: 20060117
  Transmission Date: 20060701
  Serious: No
  Sender: FDA-Public Use
  Company Number: None

PATIENT
  Age: 52 Year
  Sex: Female

DRUGS (5)
  1. HYDROMORPHONE;;;OPIOID ANALGESICS;; [Suspect]
     Indication: MAINTENANCE OF ANAESTHESIA
     Dosage: INTRAVENOUS4MG
     Route: 042
     Dates: start: 20051004, end: 20051004
  2. MIDAZOLAM;;;SEDATIVES/HYPNOTICS/ANXIOLYTICS;;; [Suspect]
     Indication: MAINTENANCE OF ANAESTHESIA
     Dosage: INTRAVENOUS;1.0
     Route: 042
     Dates: start: 20051004, end: 20051004
  3. PROPOFOL [Concomitant]
  4. VECURONIUM BROMIDE [Concomitant]
  5. DEXAMETHASONE TAB [Concomitant]

REACTIONS (3)
  - HYPOVENTILATION [None]
  - OXYGEN SATURATION DECREASED [None]
  - POST PROCEDURAL COMPLICATION [None]
